FAERS Safety Report 8242878-X (Version None)
Quarter: 2012Q1

REPORT INFORMATION
  Report Type: 
  Country: None (occurrence: None)
  Receive Date: 20120329
  Receipt Date: 20120322
  Transmission Date: 20120608
  Serious: Yes (Death, Other)
  Sender: FDA-Public Use
  Company Number: US-PFIZER INC-2012075858

PATIENT
  Age: 10 Year
  Sex: Female

DRUGS (1)
  1. AZITHROMYCIN [Suspect]

REACTIONS (2)
  - LIVER INJURY [None]
  - RESPIRATORY FAILURE [None]
